FAERS Safety Report 4696203-1 (Version None)
Quarter: 2005Q2

REPORT INFORMATION
  Report Type: 
  Country: None (occurrence: None)
  Receive Date: 20050620
  Receipt Date: 20050606
  Transmission Date: 20051028
  Serious: Yes (Hospitalization)
  Sender: FDA-Public Use
  Company Number: 167-20785-05050379

PATIENT
  Age: 70 Year
  Sex: Male

DRUGS (16)
  1. THALIDOMIDE - PHARMION (THALIDOMIDE) (50 MILLIGRAM, CAPSULES) [Suspect]
     Indication: SMALL CELL LUNG CANCER STAGE UNSPECIFIED
     Dosage: 100 MG, DAILY, ORAL
     Route: 048
     Dates: start: 20050401, end: 20050513
  2. CARBOPLATIN [Suspect]
     Indication: SMALL CELL LUNG CANCER STAGE UNSPECIFIED
     Dosage: 750 MG, DAILY
     Dates: start: 20050422, end: 20050422
  3. CARBOPLATIN [Suspect]
     Indication: SMALL CELL LUNG CANCER STAGE UNSPECIFIED
     Dosage: 750 MG, DAILY
     Dates: start: 20050527
  4. ETOPOSIDE [Suspect]
     Indication: SMALL CELL LUNG CANCER STAGE UNSPECIFIED
     Dosage: 200 MG, DAILY, ORAL; 239 MG, INTRAVENOUS
     Route: 048
     Dates: start: 20050422, end: 20050424
  5. ETOPOSIDE [Suspect]
     Indication: SMALL CELL LUNG CANCER STAGE UNSPECIFIED
     Dosage: 200 MG, DAILY, ORAL; 239 MG, INTRAVENOUS
     Route: 048
     Dates: start: 20050422, end: 20050424
  6. ETOPOSIDE [Suspect]
     Indication: SMALL CELL LUNG CANCER STAGE UNSPECIFIED
     Dosage: 200 MG, DAILY, ORAL; 239 MG, INTRAVENOUS
     Route: 048
     Dates: start: 20050527
  7. ASPIRIN [Concomitant]
  8. PERINDOPRIL (PERINDOPRIL) [Concomitant]
  9. DEXAMETHASONE [Concomitant]
  10. BECLOMETASONE (BECLOMETASONE DIPROPIONATE) [Concomitant]
  11. LANSOPRAZOLE [Concomitant]
  12. CIPROFLOXACIN [Concomitant]
  13. GRANISETRON (GRANISETRON) [Concomitant]
  14. METOCLOPRAMIDE [Concomitant]
  15. FLUCLOXACILLIN (FLUCLOXACILLIN) [Concomitant]
  16. PENICILLIN [Concomitant]

REACTIONS (7)
  - AGGRESSION [None]
  - C-REACTIVE PROTEIN INCREASED [None]
  - COMPUTERISED TOMOGRAM ABNORMAL [None]
  - CONFUSIONAL STATE [None]
  - DIAPHRAGMATIC PARALYSIS [None]
  - LOWER RESPIRATORY TRACT INFECTION [None]
  - MENTAL DISORDER [None]
